FAERS Safety Report 23207669 (Version 1)
Quarter: 2023Q4

REPORT INFORMATION
  Report Type: Spontaneous
  Country: US (occurrence: US)
  Receive Date: 20231120
  Receipt Date: 20231120
  Transmission Date: 20240110
  Serious: Yes (Other)
  Sender: FDA-Public Use
  Company Number: US-STRIDES ARCOLAB LIMITED-2023SP017267

PATIENT
  Age: 68 Year
  Sex: Female

DRUGS (3)
  1. TRAMADOL [Suspect]
     Active Substance: TRAMADOL\TRAMADOL HYDROCHLORIDE
     Indication: Fibromyalgia
     Dosage: 50 MILLIGRAM, EVERY 6 HRS (RECEIVED EVERY 6H AS NEEDED FOR OVER 10 YEARS)
     Route: 065
  2. TRAMADOL [Suspect]
     Active Substance: TRAMADOL\TRAMADOL HYDROCHLORIDE
     Indication: Pain
  3. GABAPENTIN [Suspect]
     Active Substance: GABAPENTIN
     Indication: Fibromyalgia
     Dosage: UNK
     Route: 065

REACTIONS (8)
  - Secretion discharge [Recovered/Resolved]
  - Insomnia [Recovered/Resolved]
  - Withdrawal syndrome [Unknown]
  - Chest discomfort [Unknown]
  - Neck pain [Unknown]
  - Sneezing [Unknown]
  - Cough [Unknown]
  - Off label use [Unknown]
